FAERS Safety Report 13951916 (Version 2)
Quarter: 2017Q3

REPORT INFORMATION
  Report Type: Report from Study
  Country: NL (occurrence: NL)
  Receive Date: 20170910
  Receipt Date: 20170929
  Transmission Date: 20171128
  Serious: Yes (Hospitalization, Other)
  Sender: FDA-Public Use
  Company Number: NL-AMGEN-NLDSL2017134848

PATIENT
  Age: 81 Year
  Sex: Female

DRUGS (1)
  1. ARANESP [Suspect]
     Active Substance: DARBEPOETIN ALFA
     Indication: NEPHROGENIC ANAEMIA
     Dosage: 40 MUG (IN 0.4ML, AS 100MCG/ML), Q3WK
     Route: 058

REACTIONS (2)
  - Unevaluable event [Unknown]
  - Implantable defibrillator insertion [Recovering/Resolving]

NARRATIVE: CASE EVENT DATE: 20170901
